FAERS Safety Report 20331557 (Version 3)
Quarter: 2022Q1

REPORT INFORMATION
  Report Type: Spontaneous
  Country: JP (occurrence: JP)
  Receive Date: 20220113
  Receipt Date: 20220205
  Transmission Date: 20220423
  Serious: Yes (Death)
  Sender: FDA-Public Use
  Company Number: JP-002147023-NVSJ2022JP000664

PATIENT
  Age: 84 Year
  Sex: Male

DRUGS (9)
  1. XOLAIR [Suspect]
     Active Substance: OMALIZUMAB
     Indication: Chronic spontaneous urticaria
     Route: 058
     Dates: start: 20211215
  2. XYZAL [Concomitant]
     Active Substance: LEVOCETIRIZINE DIHYDROCHLORIDE
     Indication: Product used for unknown indication
     Dosage: UNK
  3. NIPOLAZIN [Concomitant]
     Indication: Product used for unknown indication
     Dosage: 2 DOSAGE FORM, BID, AFTER BREAKFAST AND SUPPER
  4. PREDONINE [Concomitant]
     Active Substance: PREDNISOLONE
     Indication: Product used for unknown indication
     Dosage: 0.5 G, QD, AFTER BREAKFAST
  5. LEVETIRACETAM [Concomitant]
     Active Substance: LEVETIRACETAM
     Indication: Product used for unknown indication
     Dosage: 0.5 DOSAGE FORM, BID, AFTER BREAKFAST AND SUPPER
     Route: 065
  6. GLIMEPIRIDE [Concomitant]
     Active Substance: GLIMEPIRIDE
     Indication: Product used for unknown indication
     Dosage: 2 DOSAGE FORM, BID, AFTER BREAKFAST AND SUPPER
     Route: 065
  7. JANUVIA [Concomitant]
     Active Substance: SITAGLIPTIN PHOSPHATE
     Indication: Product used for unknown indication
     Dosage: 1.5 DOSAGE FORM, QD, AFTER BREAKFAST
     Route: 065
  8. CALCIUM POLYSTYRENE SULFONATE [Concomitant]
     Active Substance: CALCIUM POLYSTYRENE SULFONATE
     Indication: Product used for unknown indication
     Dosage: 1 DOSAGE FORM, QD, AFTER BREAKFAST
     Route: 048
  9. HYDROXYZINE PAMOATE [Concomitant]
     Active Substance: HYDROXYZINE PAMOATE
     Indication: Product used for unknown indication
     Route: 065

REACTIONS (5)
  - Pulmonary haematoma [Fatal]
  - Chronic spontaneous urticaria [Fatal]
  - Condition aggravated [Fatal]
  - Asthenia [Fatal]
  - Respiratory failure [Fatal]

NARRATIVE: CASE EVENT DATE: 20220103
